FAERS Safety Report 25964341 (Version 2)
Quarter: 2025Q4

REPORT INFORMATION
  Report Type: Spontaneous
  Country: EU (occurrence: EU)
  Receive Date: 20251027
  Receipt Date: 20251107
  Transmission Date: 20260118
  Serious: Yes (Life-Threatening, Other)
  Sender: NOVARTIS
  Company Number: EU-002147023-NVSC2021DE223322

PATIENT
  Age: 36 Year
  Sex: Female

DRUGS (9)
  1. CYCLOSPORINE [Suspect]
     Active Substance: CYCLOSPORINE
     Indication: Thrombotic thrombocytopenic purpura
     Dosage: UNK
     Route: 065
  2. RITUXIMAB [Suspect]
     Active Substance: RITUXIMAB
     Indication: Thrombotic thrombocytopenic purpura
     Dosage: UNK
     Route: 065
  3. RITUXIMAB [Suspect]
     Active Substance: RITUXIMAB
     Dosage: UNK (PRIOR TO PREGNANCY)
     Route: 065
  4. RITUXIMAB [Suspect]
     Active Substance: RITUXIMAB
     Dosage: UNK (AFTER PREGNANCY)
     Route: 065
  5. CAPLACIZUMAB [Suspect]
     Active Substance: CAPLACIZUMAB
     Indication: Thrombotic thrombocytopenic purpura
     Dosage: UNK
     Route: 065
  6. CAPLACIZUMAB [Suspect]
     Active Substance: CAPLACIZUMAB
     Dosage: UNK
     Route: 065
  7. POTASSIUM [Suspect]
     Active Substance: POTASSIUM
     Indication: Abortion induced
     Dosage: UNK (INTRACODAL INJECTION)
     Route: 065
  8. AZATHIOPRINE [Concomitant]
     Active Substance: AZATHIOPRINE
     Indication: Thrombotic thrombocytopenic purpura
     Dosage: UNK
     Route: 065
  9. PREDNISOLONE [Concomitant]
     Active Substance: PREDNISOLONE
     Indication: Product used for unknown indication
     Dosage: 100 MILLIGRAM, QD
     Route: 065

REACTIONS (12)
  - Oligohydramnios [Unknown]
  - Immune thrombocytopenia [Unknown]
  - Placental insufficiency [Recovered/Resolved]
  - Thrombosis [Unknown]
  - Pre-eclampsia [Recovered/Resolved]
  - Haemolytic anaemia [Recovered/Resolved]
  - Hypertension [Unknown]
  - Food poisoning [Unknown]
  - Placental oedema [Unknown]
  - Maternal exposure during pregnancy [Recovered/Resolved]
  - Off label use [Unknown]
  - Product use in unapproved indication [Unknown]
